FAERS Safety Report 21323722 (Version 1)
Quarter: 2022Q3

REPORT INFORMATION
  Report Type: Spontaneous
  Country: CH (occurrence: CH)
  Receive Date: 20220912
  Receipt Date: 20220912
  Transmission Date: 20221026
  Serious: Yes (Other)
  Sender: FDA-Public Use
  Company Number: None

PATIENT
  Age: 46 Year
  Sex: Male
  Weight: 96 kg

DRUGS (4)
  1. MYFORTIC [Suspect]
     Active Substance: MYCOPHENOLATE SODIUM
     Indication: Renal and pancreas transplant
     Dosage: 720 MG, Q12H (TWICE DAILY)
     Route: 048
  2. PROGRAF [Suspect]
     Active Substance: TACROLIMUS
     Indication: Renal and pancreas transplant
     Dosage: 4.5 MG, QD (3 MG IN THE MORNING AND 1.5 MG IN THE EVENING)
     Route: 048
  3. ASS CARDIO SPIRIG [Concomitant]
     Indication: Product used for unknown indication
     Dosage: 100 MG, QD
     Route: 048
  4. ESOMEPRAZOLE [Concomitant]
     Active Substance: ESOMEPRAZOLE
     Indication: Product used for unknown indication
     Dosage: UNK UNK, PRN
     Route: 048

REACTIONS (1)
  - Major depression [Not Recovered/Not Resolved]
